FAERS Safety Report 13635258 (Version 1)
Quarter: 2017Q2

REPORT INFORMATION
  Report Type: Spontaneous
  Country: US (occurrence: US)
  Receive Date: 20170531
  Receipt Date: 20170531
  Transmission Date: 20170830
  Serious: No
  Sender: FDA-Public Use
  Company Number: US-ASTELLAS-1708302

PATIENT
  Age: 42 Year
  Sex: Female

DRUGS (9)
  1. TARCEVA [Suspect]
     Active Substance: ERLOTINIB HYDROCHLORIDE
     Indication: BRONCHIAL CARCINOMA
     Dosage: TAKE 1 TABLET BY MOUTH EVERY DAY
     Route: 048
  2. OXYCODONE HYDROCHLORIDE. [Concomitant]
     Active Substance: OXYCODONE HYDROCHLORIDE
  3. LORAZEPAM. [Concomitant]
     Active Substance: LORAZEPAM
  4. SENOKOT [Concomitant]
     Active Substance: SENNOSIDES
  5. ACYCLOVIR. [Concomitant]
     Active Substance: ACYCLOVIR
  6. TRANSDERM SCOP [Concomitant]
     Active Substance: SCOPOLAMINE
  7. FENTANYL. [Concomitant]
     Active Substance: FENTANYL
  8. METOCLOPRAMIDE HCL [Concomitant]
     Active Substance: METOCLOPRAMIDE HYDROCHLORIDE
  9. PROCHLORPERAZINE MALEATE. [Concomitant]
     Active Substance: PROCHLORPERAZINE MALEATE

REACTIONS (2)
  - Diarrhoea [Unknown]
  - Dry skin [Unknown]
